FAERS Safety Report 8046212-X (Version None)
Quarter: 2012Q1

REPORT INFORMATION
  Report Type: 
  Country: None (occurrence: None)
  Receive Date: 20120113
  Receipt Date: 20120103
  Transmission Date: 20120608
  Serious: Yes (Hospitalization)
  Sender: FDA-Public Use
  Company Number: BR-PFIZER INC-2012001090

PATIENT
  Age: 67 Year
  Sex: Female

DRUGS (2)
  1. LYRICA [Suspect]
     Indication: BACK PAIN
     Dosage: 150 MG, 2X/DAY (2 TABLETS, 2X/DAY)
     Route: 048
     Dates: start: 20090201
  2. CELEBREX [Suspect]
     Indication: BACK PAIN
     Dosage: 200 MG, 2X/DAY (2 TABLETS, 2X/DAY)
     Route: 048
     Dates: start: 20090201

REACTIONS (2)
  - SPINAL OPERATION [None]
  - INTERVERTEBRAL DISC OPERATION [None]
